FAERS Safety Report 22181124 (Version 3)
Quarter: 2023Q2

REPORT INFORMATION
  Report Type: Report from Study
  Country: BR (occurrence: BR)
  Receive Date: 20230406
  Receipt Date: 20230421
  Transmission Date: 20230722
  Serious: Yes (Death, Hospitalization)
  Sender: FDA-Public Use
  Company Number: BR-002147023-NVSC2022BR285832

PATIENT
  Age: 60 Year
  Sex: Female

DRUGS (1)
  1. KISQALI [Suspect]
     Active Substance: RIBOCICLIB
     Indication: Breast cancer
     Dosage: UNK, LAST TIME USED KISQALI WAS IN FEB 2023
     Route: 065
     Dates: end: 202302

REACTIONS (5)
  - Death [Fatal]
  - Neoplasm malignant [Unknown]
  - Condition aggravated [Unknown]
  - Metastasis [Unknown]
  - Vomiting [Recovered/Resolved]

NARRATIVE: CASE EVENT DATE: 20230406
